FAERS Safety Report 7513234-4 (Version None)
Quarter: 2011Q2

REPORT INFORMATION
  Report Type: 
  Country: None (occurrence: None)
  Receive Date: 20110531
  Receipt Date: 20110509
  Transmission Date: 20111010
  Serious: Yes (Other)
  Sender: FDA-Public Use
  Company Number: US-BAYER-2011-026650

PATIENT
  Sex: Female
  Weight: 76 kg

DRUGS (11)
  1. GLYOXAL [Concomitant]
  2. EFFEXOR [Concomitant]
     Indication: DEPRESSION
     Dosage: UNK
     Dates: start: 20040101
  3. YASMIN [Suspect]
  4. SYNTHROID [Concomitant]
     Indication: THYROID HORMONE REPLACEMENT THERAPY
     Dosage: UNK UNK, QD
     Route: 048
     Dates: start: 19980101
  5. ACIPHEX [Concomitant]
     Indication: GASTROOESOPHAGEAL REFLUX DISEASE
     Dosage: 20 MG, UNK
     Dates: start: 20020101
  6. CARAFATE [Concomitant]
     Route: 048
  7. EFFEXOR [Concomitant]
     Indication: ANXIETY
  8. NASONEX [Concomitant]
  9. MYLANTA NOS [Concomitant]
  10. ACETAMINOPHEN [Concomitant]
     Route: 048
  11. ZOLOFT [Concomitant]
     Dosage: 12.5 MG, QD

REACTIONS (5)
  - CHOLECYSTECTOMY [None]
  - CHOLELITHIASIS [None]
  - DEPRESSION [None]
  - ANXIETY [None]
  - CHOLECYSTITIS CHRONIC [None]
